FAERS Safety Report 15555204 (Version 2)
Quarter: 2018Q4

REPORT INFORMATION
  Report Type: Spontaneous
  Country: US (occurrence: US)
  Receive Date: 20181026
  Receipt Date: 20181219
  Transmission Date: 20190205
  Serious: Yes (Hospitalization, Other)
  Sender: FDA-Public Use
  Company Number: US-GLAXOSMITHKLINE-US2018GSK194478

PATIENT
  Age: 51 Year
  Sex: Female

DRUGS (3)
  1. LAMICTAL [Suspect]
     Active Substance: LAMOTRIGINE
     Dosage: 50 MG, UNK
     Route: 048
  2. LAMICTAL [Suspect]
     Active Substance: LAMOTRIGINE
     Dosage: 75 MG, UNK
     Route: 048
  3. LAMICTAL [Suspect]
     Active Substance: LAMOTRIGINE
     Indication: BIPOLAR DISORDER
     Dosage: 25 MG, QD
     Route: 048
     Dates: start: 20161128

REACTIONS (54)
  - Skin exfoliation [Unknown]
  - Eye disorder [Unknown]
  - Oral mucosal exfoliation [Unknown]
  - Eye irritation [Unknown]
  - Skin haemorrhage [Unknown]
  - Skin fibrosis [Unknown]
  - Conjunctivochalasis [Unknown]
  - Blepharitis [Unknown]
  - Corneal scar [Unknown]
  - Toxic epidermal necrolysis [Unknown]
  - Ulcerative keratitis [Unknown]
  - Burn debridement [Unknown]
  - Oral mucosal eruption [Unknown]
  - Blister [Unknown]
  - Flushing [Unknown]
  - Dry skin [Unknown]
  - Dry eye [Unknown]
  - Eye inflammation [Unknown]
  - Blepharospasm [Unknown]
  - Scab [Unknown]
  - Periorbital oedema [Unknown]
  - Ocular hyperaemia [Unknown]
  - Vasculitis [Unknown]
  - Ectropion [Unknown]
  - Conjunctival cyst [Unknown]
  - Skin oedema [Unknown]
  - Mydriasis [Unknown]
  - Photophobia [Unknown]
  - Rash [Unknown]
  - Drug hypersensitivity [Unknown]
  - Stevens-Johnson syndrome [Unknown]
  - Symblepharon [Unknown]
  - Skin necrosis [Unknown]
  - Corneal epithelium defect [Unknown]
  - Itching scar [Unknown]
  - Skin warm [Unknown]
  - Conjunctivitis bacterial [Unknown]
  - Eye discharge [Unknown]
  - Skin lesion [Recovering/Resolving]
  - Conjunctival scar [Unknown]
  - Erythema [Unknown]
  - Rash pruritic [Unknown]
  - Pruritus generalised [Unknown]
  - Rash generalised [Unknown]
  - Conjunctival granuloma [Unknown]
  - Eye pain [Unknown]
  - Visual impairment [Unknown]
  - Dermatitis [Unknown]
  - Vision blurred [Unknown]
  - Rash erythematous [Unknown]
  - Rash macular [Unknown]
  - Madarosis [Unknown]
  - Meibomian gland dysfunction [Unknown]
  - Keratopathy [Unknown]

NARRATIVE: CASE EVENT DATE: 20161221
